FAERS Safety Report 13485128 (Version 1)
Quarter: 2017Q2

REPORT INFORMATION
  Report Type: Spontaneous
  Country: IT (occurrence: IT)
  Receive Date: 20170425
  Receipt Date: 20170425
  Transmission Date: 20170830
  Serious: Yes (Other)
  Sender: FDA-Public Use
  Company Number: IT-ACCORD-050739

PATIENT
  Sex: Male

DRUGS (6)
  1. CISPLATIN. [Suspect]
     Active Substance: CISPLATIN
     Indication: POROCARCINOMA
     Route: 042
     Dates: start: 200804, end: 2008
  2. CISPLATIN. [Suspect]
     Active Substance: CISPLATIN
     Indication: POROCARCINOMA
     Dosage: WEEKLY
     Route: 042
     Dates: start: 200804, end: 2008
  3. DOCETAXEL. [Suspect]
     Active Substance: DOCETAXEL
     Indication: POROCARCINOMA
     Dosage: WEEKLY
     Route: 042
     Dates: start: 2008, end: 2008
  4. CETUXIMAB. [Concomitant]
     Active Substance: CETUXIMAB
     Indication: POROCARCINOMA
     Dosage: FIRST WEEK
     Route: 042
     Dates: start: 201109
  5. FLUOROURACIL. [Suspect]
     Active Substance: FLUOROURACIL
     Indication: POROCARCINOMA
     Dosage: PER DAY
     Route: 042
     Dates: start: 200804, end: 2008
  6. FLUOROURACIL. [Suspect]
     Active Substance: FLUOROURACIL
     Indication: POROCARCINOMA
     Dosage: PER DAY
     Route: 042
     Dates: start: 200804, end: 2008

REACTIONS (3)
  - Thrombocytopenia [Unknown]
  - Off label use [Unknown]
  - Hypersensitivity [Unknown]

NARRATIVE: CASE EVENT DATE: 2008
